FAERS Safety Report 9912938 (Version 1)
Quarter: 2014Q1

REPORT INFORMATION
  Report Type: Spontaneous
  Country: US (occurrence: None)
  Receive Date: 20140218
  Receipt Date: 20140218
  Transmission Date: 20141002
  Serious: Yes (Other)
  Sender: FDA-Public Use
  Company Number: None

PATIENT
  Age: 53 Year
  Sex: Female

DRUGS (1)
  1. COPAXONE 20 MG TEVA [Suspect]
     Route: 048
     Dates: start: 20130607

REACTIONS (4)
  - Depression [None]
  - Dyspnoea [None]
  - Chest discomfort [None]
  - Spinal disorder [None]
